FAERS Safety Report 16587407 (Version 1)
Quarter: 2019Q3

REPORT INFORMATION
  Report Type: Spontaneous
  Country: GB (occurrence: GB)
  Receive Date: 20190717
  Receipt Date: 20190717
  Transmission Date: 20191004
  Serious: Yes (Life-Threatening)
  Sender: FDA-Public Use
  Company Number: GB-MYLANLABS-2019M1066993

PATIENT
  Age: 66 Year
  Sex: Female
  Weight: 52.8 kg

DRUGS (12)
  1. SODIUM VALPROATE [Suspect]
     Active Substance: VALPROATE SODIUM
     Indication: MYOCLONIC EPILEPSY
     Dosage: 200MG TWICE DAILY, HIGHEST DOSE 400MG TWICE DAILY, WITHDRAWN FROM 300MG TWICE DAILY OVER 2 DAYS.
     Route: 048
     Dates: start: 20181101, end: 20190124
  2. CLONAZEPAM. [Concomitant]
     Active Substance: CLONAZEPAM
     Dosage: 1000 MICROGRAM, QD
  3. TOPIRAMATE. [Suspect]
     Active Substance: TOPIRAMATE
     Indication: DEMENTIA ALZHEIMER^S TYPE
     Dosage: 25 MILLIGRAM, QD
     Route: 048
     Dates: start: 20181221
  4. TOPIRAMATE. [Suspect]
     Active Substance: TOPIRAMATE
     Dosage: 25 MILLIGRAM, QD
     Route: 048
     Dates: start: 20190104, end: 20190107
  5. SENNA                              /00142201/ [Concomitant]
     Active Substance: SENNA LEAF
     Dosage: 15 MILLIGRAM
  6. MIRTAZAPINE. [Concomitant]
     Active Substance: MIRTAZAPINE
     Dosage: 15 MILLIGRAM
  7. DONEPEZIL. [Concomitant]
     Active Substance: DONEPEZIL
     Dosage: 10 MILLIGRAM
  8. BUTRANS [Concomitant]
     Active Substance: BUPRENORPHINE
     Dosage: 5 MICROGRAM, QH (5MCG/HOUR)
     Route: 062
  9. CITALOPRAM [Concomitant]
     Active Substance: CITALOPRAM HYDROBROMIDE
     Dosage: 16 MILLIGRAM
     Route: 048
  10. LAMOTRIGINE. [Concomitant]
     Active Substance: LAMOTRIGINE
     Dosage: UNK
  11. TOPIRAMATE. [Suspect]
     Active Substance: TOPIRAMATE
     Dosage: 50 MILLIGRAM, QD
     Route: 048
     Dates: start: 20190103
  12. PROCYCLIDINE [Concomitant]
     Active Substance: PROCYCLIDINE
     Dosage: ORAL, INTRAMUSCULAR, AS NEEDED.

REACTIONS (4)
  - Epilepsy [Unknown]
  - Encephalopathy [Recovering/Resolving]
  - Hypertonia [Unknown]
  - Unresponsive to stimuli [Unknown]

NARRATIVE: CASE EVENT DATE: 20181231
